FAERS Safety Report 5806513-X (Version None)
Quarter: 2008Q3

REPORT INFORMATION
  Report Type: 
  Country: None (occurrence: None)
  Receive Date: 20080710
  Receipt Date: 20080626
  Transmission Date: 20090109
  Serious: Yes (Hospitalization)
  Sender: FDA-Public Use
  Company Number: JP-ABBOTT-08P-087-0457016-00

PATIENT
  Age: 78 Year
  Sex: Male

DRUGS (5)
  1. LUPRON DEPOT [Suspect]
     Indication: PROSTATE CANCER STAGE II
     Dates: start: 20031014, end: 20060125
  2. LUPRON DEPOT [Suspect]
     Route: 058
     Dates: start: 20060222, end: 20060821
  3. LOXOPROFEN [Concomitant]
     Indication: DYSURIA
     Route: 048
     Dates: start: 20040826
  4. URAPIDIL [Concomitant]
     Indication: DYSURIA
     Route: 048
     Dates: start: 20020502
  5. IDOMETHINE KOWA SUPPO [Concomitant]
     Indication: DYSURIA
     Route: 048
     Dates: start: 20050304, end: 20061016

REACTIONS (2)
  - ANGINA PECTORIS [None]
  - PROSTATIC SPECIFIC ANTIGEN INCREASED [None]
